FAERS Safety Report 9805766 (Version 1)
Quarter: 2014Q1

REPORT INFORMATION
  Report Type: Spontaneous
  Country: US (occurrence: None)
  Receive Date: 20140108
  Receipt Date: 20140108
  Transmission Date: 20141002
  Serious: Yes (Hospitalization)
  Sender: FDA-Public Use
  Company Number: None

PATIENT
  Age: 61 Year
  Sex: Male
  Weight: 73.5 kg

DRUGS (2)
  1. NEOMYCIN [Suspect]
     Indication: SURGERY
     Route: 048
     Dates: start: 20130811, end: 20130811
  2. ERYTHROMYCIN [Suspect]
     Indication: SURGERY
     Route: 048
     Dates: start: 20130811, end: 20130811

REACTIONS (1)
  - Anaphylactic reaction [None]
